FAERS Safety Report 7478695-8 (Version None)
Quarter: 2011Q2

REPORT INFORMATION
  Report Type: 
  Country: None (occurrence: None)
  Receive Date: 20110513
  Receipt Date: 20110506
  Transmission Date: 20111010
  Serious: Yes (Death)
  Sender: FDA-Public Use
  Company Number: JP-ASTRAZENECA-2011SE14695

PATIENT
  Age: 139 Day
  Sex: Male

DRUGS (8)
  1. FAMOTIDINE [Concomitant]
     Dates: end: 20090113
  2. MEROPENEM [Suspect]
     Indication: MENINGITIS BACTERIAL
     Route: 042
     Dates: start: 20081226, end: 20090109
  3. WAKOBITAL [Concomitant]
     Dates: end: 20090110
  4. DENOSINE [Concomitant]
     Dates: start: 20090117
  5. COAHIBITOR [Concomitant]
     Dates: start: 20090111, end: 20090113
  6. MANNITOL [Concomitant]
     Dates: end: 20090109
  7. ROCEPHIN [Concomitant]
     Dates: end: 20090110
  8. COAHIBITOR [Concomitant]
     Dates: end: 20090109

REACTIONS (1)
  - TOXIC EPIDERMAL NECROLYSIS [None]
